FAERS Safety Report 7587269-X (Version None)
Quarter: 2011Q3

REPORT INFORMATION
  Report Type: 
  Country: None (occurrence: None)
  Receive Date: 20110701
  Receipt Date: 20110627
  Transmission Date: 20111222
  Serious: Yes (Life-Threatening, Hospitalization, Disabling, Other)
  Sender: FDA-Public Use
  Company Number: US-ABBOTT-11P-163-0834462-00

PATIENT
  Sex: Female

DRUGS (7)
  1. DEPAKOTE [Suspect]
  2. LAMICTAL [Suspect]
     Indication: BIPOLAR DISORDER
     Route: 048
     Dates: start: 20061001, end: 20061023
  3. LAMICTAL [Suspect]
     Dates: start: 20091001
  4. RISPERIDONE [Concomitant]
     Indication: PRODUCT USED FOR UNKNOWN INDICATION
     Dates: start: 20020101, end: 20061104
  5. AMOXICILLIN TRIHYDRATE [Concomitant]
     Indication: PRODUCT USED FOR UNKNOWN INDICATION
     Dates: start: 20061031, end: 20061101
  6. DEPAKOTE [Suspect]
     Indication: BIPOLAR DISORDER
     Route: 048
     Dates: start: 20040101, end: 20061104
  7. ABILIFY [Concomitant]
     Indication: PRODUCT USED FOR UNKNOWN INDICATION

REACTIONS (33)
  - RASH [None]
  - UNRESPONSIVE TO STIMULI [None]
  - FATIGUE [None]
  - LEARNING DISABILITY [None]
  - LETHARGY [None]
  - BLISTER [None]
  - DRUG HYPERSENSITIVITY [None]
  - APPARENT LIFE THREATENING EVENT [None]
  - FEELING HOT [None]
  - PROTHROMBIN TIME PROLONGED [None]
  - DECREASED APPETITE [None]
  - C-REACTIVE PROTEIN INCREASED [None]
  - CONDITION AGGRAVATED [None]
  - DISSEMINATED INTRAVASCULAR COAGULATION [None]
  - LIVER DISORDER [None]
  - DRUG RASH WITH EOSINOPHILIA AND SYSTEMIC SYMPTOMS [None]
  - BLOOD BILIRUBIN INCREASED [None]
  - STEVENS-JOHNSON SYNDROME [None]
  - CONJUNCTIVITIS [None]
  - FIBRIN D DIMER INCREASED [None]
  - SLOW RESPONSE TO STIMULI [None]
  - OEDEMA PERIPHERAL [None]
  - SKIN EXFOLIATION [None]
  - BLOOD LACTATE DEHYDROGENASE INCREASED [None]
  - PYREXIA [None]
  - LIP ULCERATION [None]
  - KAWASAKI'S DISEASE [None]
  - HAEMOLYSIS [None]
  - DRUG INTERACTION [None]
  - ACTIVATED PARTIAL THROMBOPLASTIN TIME PROLONGED [None]
  - INTERNATIONAL NORMALISED RATIO INCREASED [None]
  - STREPTOCOCCAL INFECTION [None]
  - ILL-DEFINED DISORDER [None]
